FAERS Safety Report 25495190 (Version 2)
Quarter: 2025Q3

REPORT INFORMATION
  Report Type: Spontaneous
  Country: IN (occurrence: IN)
  Receive Date: 20250630
  Receipt Date: 20250721
  Transmission Date: 20251020
  Serious: Yes (Other)
  Sender: PFIZER
  Company Number: IN-PFIZER INC-PV202200017204

PATIENT
  Age: 74 Year
  Sex: Female
  Weight: 68 kg

DRUGS (2)
  1. CRIZOTINIB [Suspect]
     Active Substance: CRIZOTINIB
     Indication: Lung neoplasm malignant
     Dosage: 250 MG, BD (TWICE A DAY)
     Route: 048
  2. CRIZOTINIB [Suspect]
     Active Substance: CRIZOTINIB
     Dosage: 250 MG, 1X/DAY
     Route: 048
     Dates: start: 202205, end: 202206

REACTIONS (6)
  - Pain [Unknown]
  - Malaise [Recovered/Resolved]
  - Dyspepsia [Unknown]
  - Hyperchlorhydria [Unknown]
  - Discomfort [Unknown]
  - Intentional dose omission [Unknown]

NARRATIVE: CASE EVENT DATE: 20220501
